FAERS Safety Report 5973656-X (Version None)
Quarter: 2008Q4

REPORT INFORMATION
  Report Type: 
  Country: None (occurrence: None)
  Receive Date: 20081201
  Receipt Date: 20081119
  Transmission Date: 20090506
  Serious: Yes (Hospitalization)
  Sender: FDA-Public Use
  Company Number: JP-ELI_LILLY_AND_COMPANY-JP200809005221

PATIENT
  Age: 45 Year
  Sex: Male

DRUGS (4)
  1. ZYPREXA [Suspect]
     Indication: PSYCHOTIC DISORDER DUE TO A GENERAL MEDICAL CONDITION
     Dosage: UNK, UNK
     Route: 048
     Dates: end: 20080907
  2. ZYPREXA [Suspect]
     Dosage: 10 MG, DAILY (1/D)
     Route: 048
     Dates: start: 20080911, end: 20080911
  3. ZYPREXA [Suspect]
     Dosage: 10 MG, UNKNOWN
     Route: 048
     Dates: start: 20080101, end: 20080101
  4. ZYPREXA [Suspect]
     Dosage: 20 MG, UNKNOWN
     Route: 048
     Dates: start: 20080101

REACTIONS (6)
  - DECUBITUS ULCER [None]
  - ERYTHEMA [None]
  - PSYCHIATRIC SYMPTOM [None]
  - PYREXIA [None]
  - SKIN EROSION [None]
  - WHITE BLOOD CELL COUNT INCREASED [None]
